FAERS Safety Report 6134559-3 (Version None)
Quarter: 2009Q1

REPORT INFORMATION
  Report Type: 
  Country: None (occurrence: None)
  Receive Date: 20090327
  Receipt Date: 20090224
  Transmission Date: 20090719
  Serious: No
  Sender: FDA-Public Use
  Company Number: US-BAYER-200910302NA

PATIENT
  Age: 65 Year
  Sex: Female
  Weight: 78 kg

DRUGS (2)
  1. AVELOX [Suspect]
     Indication: DIVERTICULITIS
     Dosage: TOTAL DAILY DOSE: 400 MG  UNIT DOSE: 400 MG
     Route: 048
     Dates: start: 20090106, end: 20090106
  2. ZETIA [Concomitant]

REACTIONS (4)
  - DIZZINESS [None]
  - NAUSEA [None]
  - PALPITATIONS [None]
  - PRURITUS GENERALISED [None]
